FAERS Safety Report 15022594 (Version 1)
Quarter: 2018Q2

REPORT INFORMATION
  Report Type: Report from Study
  Country: FR (occurrence: FR)
  Receive Date: 20180618
  Receipt Date: 20180618
  Transmission Date: 20180711
  Serious: Yes (Other)
  Sender: FDA-Public Use
  Company Number: FR-GILEAD-2018-0344144

PATIENT
  Age: 34 Year
  Sex: Female

DRUGS (2)
  1. CHARCOAL [Concomitant]
     Active Substance: ACTIVATED CHARCOAL
     Dosage: UNK, QD
  2. EMTRICITABINE/RILPIVIRINE/TENOFOVIR DF [Suspect]
     Active Substance: EMTRICITABINE\RILPIVIRINE\TENOFOVIR DISOPROXIL FUMARATE
     Indication: PRODUCT USED FOR UNKNOWN INDICATION
     Dosage: UNK
     Route: 065
     Dates: start: 201708

REACTIONS (13)
  - Sjogren^s syndrome [Unknown]
  - Abdominal pain lower [Unknown]
  - Myalgia [Unknown]
  - Fatigue [Unknown]
  - Abdominal distension [Unknown]
  - Insomnia [Unknown]
  - Dyspnoea [Unknown]
  - Asthma [Unknown]
  - Dyspepsia [Recovered/Resolved]
  - Abdominal pain upper [Unknown]
  - Oral pain [Unknown]
  - Oropharyngeal pain [Unknown]
  - Abnormal faeces [Unknown]

NARRATIVE: CASE EVENT DATE: 201708
